FAERS Safety Report 17727359 (Version 2)
Quarter: 2020Q2

REPORT INFORMATION
  Report Type: Spontaneous
  Country: US (occurrence: US)
  Receive Date: 20200430
  Receipt Date: 20200518
  Transmission Date: 20200714
  Serious: Yes (Hospitalization, Other)
  Sender: FDA-Public Use
  Company Number: US-ELI_LILLY_AND_COMPANY-US202004008048

PATIENT
  Sex: Male

DRUGS (4)
  1. HUMALOG MIX75/25 [Suspect]
     Active Substance: INSULIN LISPRO
     Indication: TYPE 2 DIABETES MELLITUS
     Dosage: 33 U, PRN (SLIDING SCALE)
     Route: 058
     Dates: start: 2013
  2. HUMULIN R [Suspect]
     Active Substance: INSULIN HUMAN
     Indication: TYPE 2 DIABETES MELLITUS
     Dosage: UNK UNK, PRN (SLIDING SCALE)
     Route: 058
  3. LANTUS [Concomitant]
     Active Substance: INSULIN GLARGINE
     Indication: TYPE 2 DIABETES MELLITUS
     Dosage: 60 U, UNKNOWN
  4. TOUJEO [Concomitant]
     Active Substance: INSULIN GLARGINE
     Indication: TYPE 2 DIABETES MELLITUS
     Dosage: 80 U, DAILY (NIGHT)

REACTIONS (12)
  - Aneurysm [Unknown]
  - Bone erosion [Unknown]
  - Diabetes mellitus inadequate control [Unknown]
  - Neuropathy peripheral [Unknown]
  - Localised infection [Not Recovered/Not Resolved]
  - Chronic obstructive pulmonary disease [Unknown]
  - Atrial fibrillation [Unknown]
  - Impaired healing [Unknown]
  - Thrombosis [Unknown]
  - Neuropathic arthropathy [Unknown]
  - Localised infection [Recovered/Resolved]
  - Cardiac failure congestive [Unknown]
